FAERS Safety Report 9325661 (Version 1)
Quarter: 2013Q2

REPORT INFORMATION
  Report Type: Spontaneous
  Country: US (occurrence: US)
  Receive Date: 20130604
  Receipt Date: 20130604
  Transmission Date: 20140414
  Serious: Yes (Other)
  Sender: FDA-Public Use
  Company Number: US-BAYER-2013-065748

PATIENT
  Age: 60 Year
  Sex: Female

DRUGS (8)
  1. NEXAVAR [Suspect]
     Indication: PAPILLARY THYROID CANCER
     Dosage: 200 MG, BID
  2. NEXAVAR [Suspect]
     Indication: THYROID CANCER METASTATIC
     Dosage: 400 MG, BID
  3. ESOMEPRAZOLE [Concomitant]
  4. FELODIPINE [Concomitant]
  5. FUROSEMIDE [Concomitant]
  6. LISINOPRIL [Concomitant]
  7. ASPIRIN [Concomitant]
  8. LEVOTHYROXINE [Concomitant]

REACTIONS (8)
  - Renal artery stenosis [Recovering/Resolving]
  - Renal atrophy [Recovering/Resolving]
  - Metastases to bone [None]
  - Off label use [None]
  - Therapeutic response unexpected [None]
  - Diarrhoea [None]
  - Alopecia [None]
  - Weight decreased [None]
